FAERS Safety Report 10735997 (Version 1)
Quarter: 2015Q1

REPORT INFORMATION
  Report Type: Spontaneous
  Country: RO (occurrence: None)
  Receive Date: 20150121
  Receipt Date: 20150121
  Transmission Date: 20150721
  Serious: Yes (Hospitalization)
  Sender: FDA-Public Use
  Company Number: FK201500176

PATIENT
  Age: 64 Year
  Sex: Male

DRUGS (8)
  1. ALGOCALMIN [Suspect]
     Active Substance: METAMIZOLE SODIUM
     Indication: PAIN
     Dosage: 2 PILLS PER DAY
  2. KETOROLAC [Suspect]
     Active Substance: KETOROLAC\KETOROLAC TROMETHAMINE
     Indication: PAIN IN EXTREMITY
     Dosage: 2 VIALS PER DAY
     Route: 051
  3. ANTINEVRALGIC [Suspect]
     Active Substance: ASPIRIN\CAFFEINE\PHENACETIN
     Indication: PAIN
     Dosage: 2 PILLS PER DAY
  4. MELOXICAM (MELOXICAM) [Suspect]
     Active Substance: MELOXICAM
     Indication: PAIN
     Dosage: 2 VIALS PER DAY
  5. IBUPROFEN (IBUPROFEN) [Suspect]
     Active Substance: IBUPROFEN
     Indication: PAIN
  6. PIROXICAM. [Suspect]
     Active Substance: PIROXICAM
     Indication: PAIN
  7. BISEPTOL [Suspect]
     Active Substance: SULFAMETHOXAZOLE\TRIMETHOPRIM
     Indication: URINARY TRACT INFECTION
  8. CELECOXIB (CELECOXIB) [Suspect]
     Active Substance: CELECOXIB
     Indication: PAIN

REACTIONS (8)
  - Self-medication [None]
  - Hypocalcaemia [None]
  - Hyponatraemia [None]
  - Drug interaction [None]
  - Hyperuricaemia [None]
  - Rhabdomyolysis [None]
  - Acidosis [None]
  - Polyneuropathy [None]
